FAERS Safety Report 9597077 (Version 2)
Quarter: 2013Q4

REPORT INFORMATION
  Report Type: Report from Study
  Country: JP (occurrence: JP)
  Receive Date: 20131004
  Receipt Date: 20131004
  Transmission Date: 20140711
  Serious: Yes (Hospitalization)
  Sender: FDA-Public Use
  Company Number: JP-ABBVIE-11P-087-0836207-00

PATIENT
  Age: 22 Year
  Sex: Female
  Weight: 46.5 kg

DRUGS (13)
  1. HUMIRA [Suspect]
     Indication: COLITIS ULCERATIVE
     Route: 058
     Dates: start: 20100315, end: 20100525
  2. HUMIRA [Suspect]
     Route: 058
     Dates: start: 20100608, end: 20100621
  3. HUMIRA [Suspect]
     Route: 058
     Dates: start: 20100706, end: 20110704
  4. PENTASA [Concomitant]
     Indication: COLITIS ULCERATIVE
     Route: 048
     Dates: start: 20090511
  5. PREDNISOLONE [Concomitant]
     Indication: COLITIS ULCERATIVE
     Route: 048
     Dates: start: 20110606, end: 20110721
  6. PREDNISOLONE [Concomitant]
     Dates: start: 20110803, end: 20110809
  7. IMURAN [Concomitant]
     Indication: COLITIS ULCERATIVE
     Route: 048
     Dates: start: 20110204
  8. TAKEPRON [Concomitant]
     Indication: GASTRITIS PROPHYLAXIS
     Route: 048
     Dates: start: 20071126, end: 20110722
  9. ALINAMIN-F [Concomitant]
     Indication: ARTHRALGIA
     Route: 048
     Dates: start: 20080609
  10. BIO-THREE [Concomitant]
     Indication: BOWEL MOVEMENT IRREGULARITY
     Route: 048
     Dates: start: 20080623
  11. CALONAL [Concomitant]
     Indication: TOOTHACHE
     Route: 048
     Dates: start: 20110509
  12. DIFFERIN [Concomitant]
     Indication: ACNE
     Dates: start: 200912
  13. DALACIN T [Concomitant]
     Indication: ACNE
     Dates: start: 200912

REACTIONS (2)
  - Takayasu^s arteritis [Recovering/Resolving]
  - Gastroenteritis [Recovered/Resolved]
